FAERS Safety Report 24556112 (Version 1)
Quarter: 2024Q4

REPORT INFORMATION
  Report Type: Spontaneous
  Country: US (occurrence: None)
  Receive Date: 20241026
  Receipt Date: 20241026
  Transmission Date: 20250115
  Serious: No
  Sender: Public
  Company Number: None

PATIENT
  Age: 43 Year
  Sex: Female
  Weight: 101.25 kg

DRUGS (8)
  1. GABAPENTIN [Suspect]
     Active Substance: GABAPENTIN
     Indication: Pain
     Dosage: 30 CAPSULES DAILY ORAL ?
     Route: 048
     Dates: start: 20241024, end: 20241025
  2. Albuterol [Concomitant]
  3. STRATTERA [Concomitant]
     Active Substance: ATOMOXETINE HYDROCHLORIDE
  4. IMITREX [Concomitant]
     Active Substance: SUMATRIPTAN SUCCINATE
  5. MELATONIN [Concomitant]
  6. MAGNESIUM [Concomitant]
  7. IRON [Concomitant]
  8. xyzol [Concomitant]

REACTIONS (3)
  - Headache [None]
  - Somnolence [None]
  - Dyspnoea [None]

NARRATIVE: CASE EVENT DATE: 20241025
